FAERS Safety Report 25057051 (Version 1)
Quarter: 2025Q1

REPORT INFORMATION
  Report Type: Spontaneous
  Country: US (occurrence: US)
  Receive Date: 20250310
  Receipt Date: 20250310
  Transmission Date: 20250409
  Serious: No
  Sender: BEIGENE
  Company Number: US-BEIGENE-BGN-2025-002780

PATIENT
  Age: 66 Year

DRUGS (12)
  1. BRUKINSA [Suspect]
     Active Substance: ZANUBRUTINIB
     Indication: Product used for unknown indication
  2. VENCLEXTA [Concomitant]
     Active Substance: VENETOCLAX
  3. OBINUTUZUMAB [Concomitant]
     Active Substance: OBINUTUZUMAB
  4. TYLENOL [Concomitant]
     Active Substance: ACETAMINOPHEN
  5. ZOVIRAX [Concomitant]
     Active Substance: ACYCLOVIR
  6. BENADRYL [Concomitant]
     Active Substance: DIPHENHYDRAMINE HYDROCHLORIDE
  7. PEPCID [Concomitant]
     Active Substance: FAMOTIDINE
  8. LEVAQUIN [Concomitant]
     Active Substance: LEVOFLOXACIN
  9. ZOFRAN [Concomitant]
     Active Substance: ONDANSETRON HYDROCHLORIDE
  10. FLOMAX [Concomitant]
     Active Substance: TAMSULOSIN HYDROCHLORIDE
  11. RESTORIL [Concomitant]
     Active Substance: TEMAZEPAM
  12. VITAMINS [Concomitant]
     Active Substance: VITAMINS

REACTIONS (1)
  - Rash [Unknown]
